FAERS Safety Report 7232447-2 (Version None)
Quarter: 2011Q1

REPORT INFORMATION
  Report Type: 
  Country: None (occurrence: None)
  Receive Date: 20110119
  Receipt Date: 20110111
  Transmission Date: 20110831
  Serious: No
  Sender: FDA-Public Use
  Company Number: US-PFIZER INC-2011007120

PATIENT

DRUGS (1)
  1. EFFEXOR XR [Suspect]
     Indication: ANXIETY
     Dosage: UNK

REACTIONS (5)
  - ANXIETY [None]
  - RASH [None]
  - DRUG WITHDRAWAL SYNDROME [None]
  - VERTIGO [None]
  - DIZZINESS [None]
